FAERS Safety Report 10009515 (Version 1)
Quarter: 2014Q1

REPORT INFORMATION
  Report Type: Spontaneous
  Country: US (occurrence: US)
  Receive Date: 20140312
  Receipt Date: 20140312
  Transmission Date: 20141002
  Serious: No
  Sender: FDA-Public Use
  Company Number: US-INCYTE CORPORATION-2012IN001833

PATIENT
  Age: 87 Year
  Sex: Female

DRUGS (7)
  1. JAKAFI [Suspect]
     Dosage: 5 MG, BID
     Route: 048
  2. VITAMIN B12 [Concomitant]
  3. FOLIC ACID [Concomitant]
  4. VITAMIN D [Concomitant]
  5. LEVOTHYROXINE [Concomitant]
  6. ASPIRIN [Concomitant]
  7. METAMUCIL [Concomitant]

REACTIONS (5)
  - Dry mouth [Not Recovered/Not Resolved]
  - Dyspnoea [Not Recovered/Not Resolved]
  - Cough [Not Recovered/Not Resolved]
  - Lacrimation increased [None]
  - Insomnia [Not Recovered/Not Resolved]
